FAERS Safety Report 18047550 (Version 1)
Quarter: 2020Q3

REPORT INFORMATION
  Report Type: Report from Study
  Country: JP (occurrence: JP)
  Receive Date: 20200721
  Receipt Date: 20200721
  Transmission Date: 20201103
  Serious: Yes (Death, Other)
  Sender: FDA-Public Use
  Company Number: JP-009507513-2007JPN001554J

PATIENT
  Age: 28 Year
  Sex: Male
  Weight: 74 kg

DRUGS (7)
  1. LETERMOVIR [Suspect]
     Active Substance: LETERMOVIR
     Indication: ANTIVIRAL PROPHYLAXIS
     Dosage: 480 MILLIGRAM, QD
     Route: 048
     Dates: start: 20181031, end: 20181106
  2. CORTRIL [Concomitant]
     Active Substance: HYDROCORTISONE
     Dosage: 20 MILLIGRAM, AFTER MORNING
     Route: 048
     Dates: start: 20181030, end: 20181114
  3. PREVYMIS [Suspect]
     Active Substance: LETERMOVIR
     Indication: ANTIVIRAL PROPHYLAXIS
     Dosage: 480 MILLIGRAM, QD
     Route: 041
     Dates: start: 20181107, end: 20181211
  4. METHOTREXATE. [Concomitant]
     Active Substance: METHOTREXATE
     Indication: PROPHYLAXIS
     Dosage: 0.19
     Route: 051
     Dates: start: 20181031, end: 20181105
  5. RABEPRAZOLE NA [Concomitant]
     Active Substance: RABEPRAZOLE SODIUM
     Indication: PROPHYLAXIS
     Dosage: 10 MILLIGRAM, AFTER MORNING
     Route: 048
     Dates: start: 20181025, end: 20181114
  6. ACICLOVIR [Concomitant]
     Active Substance: ACYCLOVIR
     Indication: PROPHYLAXIS
     Dosage: 1000 MILLIGRAM, AFTER EACH MEAL, AT 15:00, BEFORE BED
     Route: 048
     Dates: start: 20181025, end: 20181114
  7. PROGRAF [Concomitant]
     Active Substance: TACROLIMUS
     Indication: PROPHYLAXIS
     Dosage: 0.55?0.7
     Route: 051
     Dates: start: 20181031, end: 20181211

REACTIONS (4)
  - Adverse event [Unknown]
  - Acute respiratory distress syndrome [Fatal]
  - Hepatic vein occlusion [Fatal]
  - Pneumonia [Fatal]

NARRATIVE: CASE EVENT DATE: 2018
